FAERS Safety Report 17247040 (Version 1)
Quarter: 2019Q4

REPORT INFORMATION
  Report Type: Spontaneous
  Country: US (occurrence: US)
  Receive Date: 20191213
  Receipt Date: 20191213
  Transmission Date: 20200122
  Serious: Yes (Other)
  Sender: FDA-Public Use
  Company Number: None

PATIENT
  Sex: Female

DRUGS (12)
  1. LEVOTHYROXIN [Concomitant]
     Active Substance: LEVOTHYROXINE
  2. TRAMADOL. [Concomitant]
     Active Substance: TRAMADOL
  3. ASPIRIN. [Concomitant]
     Active Substance: ASPIRIN
  4. KETOCONAZOLE. [Concomitant]
     Active Substance: KETOCONAZOLE
  5. METRONIDAZOL [Concomitant]
     Active Substance: METRONIDAZOLE
  6. IRON [Concomitant]
     Active Substance: IRON
  7. FLUOCINONIDE. [Concomitant]
     Active Substance: FLUOCINONIDE
  8. TRIAMCINOLON [Concomitant]
  9. VENTOLIN HFA [Concomitant]
     Active Substance: ALBUTEROL SULFATE
  10. PEGASYS [Suspect]
     Active Substance: PEGINTERFERON ALFA-2A
     Dosage: ?          OTHER STRENGTH:180MCG/ML;?
     Route: 058
     Dates: start: 20170620
  11. FOLIC ACID. [Concomitant]
     Active Substance: FOLIC ACID
  12. FLOVENT HFA [Concomitant]
     Active Substance: FLUTICASONE PROPIONATE

REACTIONS (1)
  - Cholecystectomy [None]
